FAERS Safety Report 9723406 (Version 2)
Quarter: 2013Q4

REPORT INFORMATION
  Report Type: Spontaneous
  Country: AU (occurrence: AU)
  Receive Date: 20131202
  Receipt Date: 20131202
  Transmission Date: 20140711
  Serious: Yes (Other)
  Sender: FDA-Public Use
  Company Number: AU-JNJFOC-20131113292

PATIENT
  Sex: 0

DRUGS (2)
  1. HALOPERIDOL [Suspect]
     Indication: DELIRIUM
     Route: 048
  2. HALOPERIDOL [Suspect]
     Indication: DELIRIUM
     Route: 065

REACTIONS (12)
  - Dyskinesia [Unknown]
  - Urinary retention [Unknown]
  - Orthostatic hypotension [Unknown]
  - Myoclonus [Unknown]
  - Delirium [Unknown]
  - Muscle rigidity [Unknown]
  - Depression [Unknown]
  - Gait disturbance [Unknown]
  - Tremor [Unknown]
  - Akathisia [Unknown]
  - Dizziness [Unknown]
  - Somnolence [Unknown]
